FAERS Safety Report 19488818 (Version 1)
Quarter: 2021Q3

REPORT INFORMATION
  Report Type: Spontaneous
  Country: NL (occurrence: NL)
  Receive Date: 20210702
  Receipt Date: 20210702
  Transmission Date: 20211014
  Serious: Yes (Other)
  Sender: FDA-Public Use
  Company Number: NL-BAUSCH-BL-2021-022206

PATIENT
  Sex: Female

DRUGS (12)
  1. HYDROCORTISON PDR V INJVLST 100MG [Suspect]
     Active Substance: HYDROCORTISONE
     Indication: CROHN^S DISEASE
     Dosage: 200 HYDRO INFUSION 6 WEEKS DAY ADMISSION
     Route: 065
     Dates: start: 20210609
  2. URSODEOXYCHOLZUUR TABLET 300MG / URSOCHOL TABLET 300MG [Concomitant]
     Indication: PRODUCT USED FOR UNKNOWN INDICATION
     Dates: start: 1983
  3. INFLIXIMAB INFUSIEPOEDER 100MG / REMICADE INFUSIEPOEDER FLACON 100MG [Suspect]
     Active Substance: INFLIXIMAB
     Indication: CHOLANGITIS SCLEROSING
  4. LACOSAMIDE TABLET  50MG / VIMPAT TABLET OMHULD  50MG [Concomitant]
     Indication: PRODUCT USED FOR UNKNOWN INDICATION
     Dosage: LACOSAMIDE TABLET  50MG / VIMPAT TABLET OMHULD  50MG
     Dates: start: 2016
  5. INFLIXIMAB INFUSIEPOEDER 100MG / REMICADE INFUSIEPOEDER FLACON 100MG [Suspect]
     Active Substance: INFLIXIMAB
     Indication: CROHN^S DISEASE
     Dosage: 300 REMICADE INFUSION 6 WEEK DAY ADMISSION
     Route: 065
     Dates: start: 20210609
  6. FOLIUMZUUR [Concomitant]
     Active Substance: FOLIC ACID
     Indication: PRODUCT USED FOR UNKNOWN INDICATION
     Dates: start: 1983
  7. FAMOTIDINE. [Concomitant]
     Active Substance: FAMOTIDINE
     Indication: PRODUCT USED FOR UNKNOWN INDICATION
     Dates: start: 1990
  8. LISINOPRIL. [Concomitant]
     Active Substance: LISINOPRIL
     Indication: PRODUCT USED FOR UNKNOWN INDICATION
     Dates: start: 2016
  9. HYDROCORTISON PDR V INJVLST 100MG [Suspect]
     Active Substance: HYDROCORTISONE
     Indication: CHOLANGITIS SCLEROSING
  10. PFIZER?BIONTECH COVID?19 VACCINE [Suspect]
     Active Substance: TOZINAMERAN
     Indication: COVID-19 IMMUNISATION
     Route: 065
     Dates: start: 20210511, end: 2021
  11. AMYLASE/LIPASE/PROTEASE 6XNF / PANCREATIS PULVIS 6XNF [Concomitant]
     Indication: PRODUCT USED FOR UNKNOWN INDICATION
     Dates: start: 2009
  12. ACENOCOUMAROL [Concomitant]
     Active Substance: ACENOCOUMAROL
     Indication: PRODUCT USED FOR UNKNOWN INDICATION
     Dates: start: 1996

REACTIONS (3)
  - Malaise [Unknown]
  - Diabetes mellitus inadequate control [Unknown]
  - Blood sodium decreased [Unknown]
